FAERS Safety Report 4411402-1 (Version None)
Quarter: 2004Q3

REPORT INFORMATION
  Report Type: 
  Country: None (occurrence: None)
  Receive Date: 20040727
  Receipt Date: 20040713
  Transmission Date: 20050211
  Serious: Yes (Hospitalization)
  Sender: FDA-Public Use
  Company Number: 2004224637NL

PATIENT
  Age: 64 Year
  Sex: Male

DRUGS (8)
  1. CAMPTOSAR [Suspect]
     Indication: COLORECTAL CANCER
     Dosage: CYCLIC, IV
     Route: 042
     Dates: start: 20040624, end: 20040624
  2. CAPECITABINE (CAPECITABINE) [Suspect]
     Indication: COLORECTAL CANCER
     Dosage: CYCLIC, ORAL
     Route: 048
     Dates: start: 20040624, end: 20040706
  3. LOSEC [Concomitant]
  4. BISOPROLOL FUMARATE [Concomitant]
  5. ASCAL (ACETYLSALICYLATE CALCIUM) [Concomitant]
  6. RAMIPRIL [Concomitant]
  7. ARESTAL (LOPERAMIDE OXIDE) [Concomitant]
  8. CRESTOR [Concomitant]

REACTIONS (4)
  - ATRIAL FIBRILLATION [None]
  - DIARRHOEA [None]
  - MALAISE [None]
  - VOMITING [None]
